FAERS Safety Report 10384762 (Version 1)
Quarter: 2014Q3

REPORT INFORMATION
  Report Type: Spontaneous
  Country: US (occurrence: US)
  Receive Date: 20140814
  Receipt Date: 20140814
  Transmission Date: 20150326
  Serious: No
  Sender: FDA-Public Use
  Company Number: US-009507513-1408USA006437

PATIENT
  Age: 50 Year
  Sex: Male

DRUGS (8)
  1. METFORMIN [Concomitant]
     Active Substance: METFORMIN HYDROCHLORIDE
  2. ZETIA [Suspect]
     Active Substance: EZETIMIBE
     Indication: BLOOD CHOLESTEROL INCREASED
     Dosage: 10 MG/ ONCE DAILY
     Route: 048
     Dates: start: 1999
  3. LOVASTATIN. [Concomitant]
     Active Substance: LOVASTATIN
  4. NIACIN. [Concomitant]
     Active Substance: NIACIN
  5. TAMSULOSIN HYDROCHLORIDE. [Concomitant]
     Active Substance: TAMSULOSIN HYDROCHLORIDE
  6. OMEPRAZOLE. [Concomitant]
     Active Substance: OMEPRAZOLE
  7. GLIMEPIRIDE. [Concomitant]
     Active Substance: GLIMEPIRIDE
  8. PIOGLITAZONE HYDROCHLORIDE. [Concomitant]
     Active Substance: PIOGLITAZONE HYDROCHLORIDE

REACTIONS (2)
  - Photosensitivity reaction [Not Recovered/Not Resolved]
  - Pruritus [Not Recovered/Not Resolved]
